FAERS Safety Report 7388818-7 (Version None)
Quarter: 2011Q1

REPORT INFORMATION
  Report Type: 
  Country: None (occurrence: None)
  Receive Date: 20110324
  Receipt Date: 20110324
  Transmission Date: 20110831
  Serious: Yes (Other)
  Sender: FDA-Public Use
  Company Number: None

PATIENT
  Age: 30 Year
  Sex: Female
  Weight: 52.1637 kg

DRUGS (1)
  1. ANTISEPTIC ALCOHOL SWABS 70% ISOPROPYL ALCOHOL TRIAD GROUP, INC./KROGE [Suspect]
     Indication: THERAPEUTIC SKIN CARE TOPICAL
     Dosage: JUNE 2010 PRIMARILY
     Dates: start: 20100601

REACTIONS (6)
  - RASH [None]
  - FOLLICULITIS [None]
  - APPLICATION SITE INFECTION [None]
  - CELLULITIS [None]
  - SCAR [None]
  - PRODUCT QUALITY ISSUE [None]
